FAERS Safety Report 21312606 (Version 2)
Quarter: 2022Q3

REPORT INFORMATION
  Report Type: Spontaneous
  Country: US (occurrence: US)
  Receive Date: 20220909
  Receipt Date: 20220913
  Transmission Date: 20221026
  Serious: No
  Sender: FDA-Public Use
  Company Number: US-PFIZER INC-202201141196

PATIENT
  Age: 72 Year
  Sex: Male
  Weight: 76.66 kg

DRUGS (2)
  1. PAXLOVID [Suspect]
     Active Substance: NIRMATRELVIR\RITONAVIR
     Indication: COVID-19 treatment
     Dosage: UNK
  2. LINZESS [Concomitant]
     Active Substance: LINACLOTIDE
     Dosage: 145 UG, 1X/DAY, (I TAKE ONE PILL IN THE MORNING BEFORE I EAT, 2 HOURS BEFORE I EAT)

REACTIONS (4)
  - Oropharyngeal pain [Unknown]
  - Ear pain [Unknown]
  - Sinus congestion [Unknown]
  - Ear discomfort [Unknown]
